FAERS Safety Report 23525022 (Version 3)
Quarter: 2024Q2

REPORT INFORMATION
  Report Type: Spontaneous
  Country: US (occurrence: US)
  Receive Date: 20240215
  Receipt Date: 20240514
  Transmission Date: 20240716
  Serious: No
  Sender: FDA-Public Use
  Company Number: US-SA-SAC20240208001093

PATIENT
  Age: 34 Year
  Sex: Female

DRUGS (33)
  1. DUPIXENT [Suspect]
     Active Substance: DUPILUMAB
     Indication: Dermatitis atopic
     Dosage: 300 MG, QOW
     Route: 058
     Dates: start: 20180131
  2. DIBASIC POTASSIUM PHOSPHATE [Concomitant]
     Active Substance: DIBASIC POTASSIUM PHOSPHATE
  3. ESCITALOPRAM [Concomitant]
     Active Substance: ESCITALOPRAM OXALATE
  4. MONTELUKAST [Concomitant]
     Active Substance: MONTELUKAST SODIUM
  5. FML FORTE [Concomitant]
     Active Substance: FLUOROMETHOLONE
  6. ERYTHROMYCIN [Concomitant]
     Active Substance: ERYTHROMYCIN
  7. TACROLIMUS [Concomitant]
     Active Substance: TACROLIMUS
  8. TRAZODONE [Concomitant]
     Active Substance: TRAZODONE HYDROCHLORIDE
  9. POLYTRIM [Concomitant]
     Active Substance: POLYMYXIN B SULFATE\TRIMETHOPRIM SULFATE
  10. ADDERALL [Concomitant]
     Active Substance: AMPHETAMINE ASPARTATE\AMPHETAMINE SULFATE\DEXTROAMPHETAMINE SACCHARATE\DEXTROAMPHETAMINE SULFATE
  11. TRIANEX [Concomitant]
     Active Substance: TRIAMCINOLONE ACETONIDE
  12. TOBRADEX [Concomitant]
     Active Substance: DEXAMETHASONE\TOBRAMYCIN
  13. WELLBUTRIN [Concomitant]
     Active Substance: BUPROPION HYDROCHLORIDE
  14. LORATADINE [Concomitant]
     Active Substance: LORATADINE
  15. FLUOXETINE [Concomitant]
     Active Substance: FLUOXETINE HYDROCHLORIDE
  16. VENTOLIN [Concomitant]
     Active Substance: ALBUTEROL SULFATE
  17. AZITHROMYCIN [Concomitant]
     Active Substance: AZITHROMYCIN
  18. PREDNISONE [Concomitant]
     Active Substance: PREDNISONE
  19. CETIRIZINE HCL [Concomitant]
     Active Substance: CETIRIZINE HYDROCHLORIDE
  20. EUCRISA [Concomitant]
     Active Substance: CRISABOROLE
  21. MYCOPHENOLIC ACID [Concomitant]
     Active Substance: MYCOPHENOLIC ACID
  22. MUPIROCIN [Concomitant]
     Active Substance: MUPIROCIN
  23. SERTRALINE [Concomitant]
     Active Substance: SERTRALINE HYDROCHLORIDE
  24. HYOSCYAMINE [Concomitant]
     Active Substance: HYOSCYAMINE
  25. NORCO [Concomitant]
     Active Substance: ACETAMINOPHEN\HYDROCODONE BITARTRATE
  26. RESTASIS [Concomitant]
     Active Substance: CYCLOSPORINE
  27. ALPRAZOLAM [Concomitant]
     Active Substance: ALPRAZOLAM
  28. BUPROPION HYDROCHLORIDE [Concomitant]
     Active Substance: BUPROPION HYDROCHLORIDE
  29. AMPHETAMINE [Concomitant]
     Active Substance: AMPHETAMINE
  30. FIBER THERAPY (CALCIUM POLYCARBOPHIL) [Concomitant]
     Active Substance: CALCIUM POLYCARBOPHIL
  31. TOBRAMYCIN [Concomitant]
     Active Substance: TOBRAMYCIN\TOBRAMYCIN SULFATE
  32. LIQUIFILM [Concomitant]
  33. BACITRACIN ZINC;POLYMYXIN B [Concomitant]

REACTIONS (9)
  - Paraesthesia oral [Unknown]
  - Asthenopia [Unknown]
  - Vision blurred [Unknown]
  - Human chorionic gonadotropin positive [Unknown]
  - Dermatitis atopic [Unknown]
  - Product dose omission issue [Unknown]
  - Skin burning sensation [Unknown]
  - Gestational hypertension [Unknown]
  - Maternal exposure during pregnancy [Unknown]
